FAERS Safety Report 5045039-0 (Version None)
Quarter: 2006Q3

REPORT INFORMATION
  Report Type: 
  Country: None (occurrence: None)
  Receive Date: 20060705
  Receipt Date: 20060612
  Transmission Date: 20061208
  Serious: Yes (Death)
  Sender: FDA-Public Use
  Company Number: US200606002548

PATIENT
  Age: 85 Year
  Sex: Female
  Weight: 46.7 kg

DRUGS (17)
  1. FORTEO [Suspect]
     Dates: start: 20040701
  2. FORTEO [Concomitant]
  3. DARVOCET-N 100 [Concomitant]
  4. MAG-OX (MAGNESIUM OXIDE) [Concomitant]
  5. MICRO-K (POTASSIUM CHLORIDE) [Concomitant]
  6. PREDNISONE TAB [Concomitant]
  7. PULMICORT [Concomitant]
  8. IPRATROPIUM BROMIDE [Concomitant]
  9. BUSPAR [Concomitant]
  10. LASIX (FUROSEMIDE, FUROSEMIDE SODIUM) [Concomitant]
  11. SINGULAIR [Concomitant]
  12. CALCIUM WITH VITAMIN D (CALCIUM PHOSPHATE, CALCIUM SODIUM LACTATE, ERG [Concomitant]
  13. MYSOLINE [Concomitant]
  14. DIAMOX [Concomitant]
  15. EFFEXOR XR [Concomitant]
  16. XOPENEX [Concomitant]
  17. ASPIRIN [Concomitant]

REACTIONS (11)
  - ARTHRALGIA [None]
  - BACK PAIN [None]
  - CHEST PAIN [None]
  - DIVERTICULUM [None]
  - DYSPNOEA [None]
  - GASTRITIS [None]
  - ILEUS [None]
  - JOINT STIFFNESS [None]
  - MYALGIA [None]
  - OEDEMA PERIPHERAL [None]
  - PRESBYOESOPHAGUS [None]
